FAERS Safety Report 13890438 (Version 2)
Quarter: 2017Q3

REPORT INFORMATION
  Report Type: Spontaneous
  Country: MX (occurrence: MX)
  Receive Date: 20170822
  Receipt Date: 20170831
  Transmission Date: 20171127
  Serious: Yes (Disabling)
  Sender: FDA-Public Use
  Company Number: MX-ELI_LILLY_AND_COMPANY-MX201708004544

PATIENT
  Sex: Female

DRUGS (2)
  1. FORTEO [Suspect]
     Active Substance: TERIPARATIDE
     Indication: PRODUCT USED FOR UNKNOWN INDICATION
     Dosage: UNK, UNKNOWN
     Route: 065
     Dates: start: 20170620
  2. FORTEO [Suspect]
     Active Substance: TERIPARATIDE
     Dosage: UNK, UNKNOWN
     Route: 065
     Dates: end: 20170808

REACTIONS (5)
  - Pain in extremity [Recovering/Resolving]
  - Arthritis [Unknown]
  - Feeling hot [Recovering/Resolving]
  - Headache [Recovering/Resolving]
  - Suspected counterfeit product [Unknown]

NARRATIVE: CASE EVENT DATE: 20170720
